FAERS Safety Report 25058231 (Version 1)
Quarter: 2025Q1

REPORT INFORMATION
  Report Type: Spontaneous
  Country: NZ (occurrence: NZ)
  Receive Date: 20250310
  Receipt Date: 20250310
  Transmission Date: 20250408
  Serious: Yes (Life-Threatening, Hospitalization, Disabling, Other)
  Sender: PFIZER
  Company Number: NZ-PFIZER INC-202500023641

PATIENT
  Age: 36 Year
  Sex: Female

DRUGS (1)
  1. DEPO-PROVERA [Suspect]
     Active Substance: MEDROXYPROGESTERONE ACETATE
     Dates: start: 19980101, end: 20181101

REACTIONS (2)
  - Invasive breast carcinoma [Recovering/Resolving]
  - Venous thrombosis limb [Unknown]

NARRATIVE: CASE EVENT DATE: 20181022
